FAERS Safety Report 18694452 (Version 1)
Quarter: 2020Q4

REPORT INFORMATION
  Report Type: Spontaneous
  Country: US (occurrence: US)
  Receive Date: 20201231
  Receipt Date: 20201231
  Transmission Date: 20210114
  Serious: Yes (Other)
  Sender: FDA-Public Use
  Company Number: None

PATIENT
  Sex: Male

DRUGS (5)
  1. GUTCONNECT365 [Suspect]
     Active Substance: DIETARY SUPPLEMENT
     Indication: GASTROOESOPHAGEAL REFLUX DISEASE
     Dates: start: 20201107, end: 20201120
  2. TERAZOSIN [Suspect]
     Active Substance: TERAZOSIN HYDROCHLORIDE
  3. GUTCONNECT365 [Suspect]
     Active Substance: DIETARY SUPPLEMENT
     Indication: ABDOMINAL DISTENSION
     Dates: start: 20201107, end: 20201120
  4. DESMOPRESSIN [Suspect]
     Active Substance: DESMOPRESSIN
  5. OXYBUTYNIN. [Suspect]
     Active Substance: OXYBUTYNIN CHLORIDE

REACTIONS (1)
  - Cerebrovascular accident [None]

NARRATIVE: CASE EVENT DATE: 20201111
